FAERS Safety Report 6665747-5 (Version None)
Quarter: 2010Q2

REPORT INFORMATION
  Report Type: 
  Country: None (occurrence: None)
  Receive Date: 20100402
  Receipt Date: 20100303
  Transmission Date: 20101027
  Serious: Yes (Death, Other)
  Sender: FDA-Public Use
  Company Number: FR-CEPHALON-2010001704

PATIENT
  Sex: Female

DRUGS (3)
  1. TREANDA [Suspect]
     Indication: NON-HODGKIN'S LYMPHOMA
     Dates: start: 20080710
  2. TREANDA [Suspect]
     Dates: start: 20081106, end: 20081221
  3. MABTHERA [Suspect]

REACTIONS (6)
  - COUGH [None]
  - FATIGUE [None]
  - JAUNDICE [None]
  - NON-HODGKIN'S LYMPHOMA [None]
  - PANCYTOPENIA [None]
  - PYREXIA [None]
